FAERS Safety Report 6806903-2 (Version None)
Quarter: 2010Q2

REPORT INFORMATION
  Report Type: 
  Country: None (occurrence: None)
  Receive Date: 20100628
  Receipt Date: 20100628
  Transmission Date: 20101027
  Serious: Yes (Hospitalization)
  Sender: FDA-Public Use
  Company Number: None

PATIENT
  Age: 79 Year
  Sex: Male
  Weight: 154.3 kg

DRUGS (2)
  1. CLINDAMYCIN [Suspect]
     Indication: ANTIBIOTIC PROPHYLAXIS
     Dosage: 600 MG ONCE IV
     Route: 042
     Dates: start: 20100308, end: 20100308
  2. CLINDAMYCIN [Suspect]
     Indication: PREOPERATIVE CARE
     Dosage: 600 MG ONCE IV
     Route: 042
     Dates: start: 20100308, end: 20100308

REACTIONS (4)
  - HAEMOPHILUS TEST POSITIVE [None]
  - PNEUMONIA [None]
  - RASH PRURITIC [None]
  - SPUTUM CULTURE POSITIVE [None]
